FAERS Safety Report 10207569 (Version 1)
Quarter: 2014Q2

REPORT INFORMATION
  Report Type: Spontaneous
  Country: US (occurrence: US)
  Receive Date: 20140530
  Receipt Date: 20140530
  Transmission Date: 20141212
  Serious: No
  Sender: FDA-Public Use
  Company Number: US-GLAXOSMITHKLINE-A1050303A

PATIENT
  Sex: Female

DRUGS (3)
  1. VENTOLIN HFA [Suspect]
     Indication: WHEEZING
     Route: 055
  2. ADVAIR HFA [Suspect]
     Indication: WHEEZING
     Route: 055
  3. UNSPECIFIED MEDICATION [Suspect]
     Indication: LIP DISORDER

REACTIONS (7)
  - Lip pain [Unknown]
  - Lip swelling [Unknown]
  - Lip exfoliation [Unknown]
  - Feeling abnormal [Unknown]
  - Erythema [Unknown]
  - Oral discomfort [Unknown]
  - Palpitations [Unknown]
